FAERS Safety Report 9130436 (Version 1)
Quarter: 2013Q1

REPORT INFORMATION
  Report Type: Spontaneous
  Country: US (occurrence: US)
  Receive Date: 20130301
  Receipt Date: 20130301
  Transmission Date: 20140127
  Serious: Yes (Other)
  Sender: FDA-Public Use
  Company Number: US-B.I. PHARMACEUTICALS,INC./RIDGEFIELD-2013-BI-04995BP

PATIENT
  Sex: Female

DRUGS (7)
  1. SPIRIVA [Suspect]
     Indication: CHRONIC OBSTRUCTIVE PULMONARY DISEASE
     Dosage: 18 MCG
     Route: 055
     Dates: start: 2009
  2. AMLODIPINE [Suspect]
     Indication: HYPERTENSION
     Dates: start: 2009
  3. CLOPIDOGREL [Suspect]
  4. LEVOTHYROXINE [Suspect]
  5. POTASSIUM [Suspect]
  6. MONTELUKAST [Suspect]
  7. FUROSEMIDE [Suspect]

REACTIONS (5)
  - Anaphylactic reaction [Not Recovered/Not Resolved]
  - Dyspnoea [Not Recovered/Not Resolved]
  - Heart rate increased [Not Recovered/Not Resolved]
  - Cheilitis [Not Recovered/Not Resolved]
  - Galactose intolerance [Not Recovered/Not Resolved]
